FAERS Safety Report 4318184-2 (Version None)
Quarter: 2004Q1

REPORT INFORMATION
  Report Type: 
  Country: None (occurrence: None)
  Receive Date: 20040315
  Receipt Date: 20040302
  Transmission Date: 20041129
  Serious: Yes (Hospitalization)
  Sender: FDA-Public Use
  Company Number: US-JNJFOC-20040300949

PATIENT
  Age: 56 Year
  Sex: Female

DRUGS (3)
  1. DURAGESIC [Suspect]
     Indication: PAIN
     Dosage: 75 UG/HR, 1 IN 72 HOUR, TRANSDERMAL
     Route: 062
     Dates: start: 20031201, end: 20040218
  2. MORPHINE [Concomitant]
  3. XANAX [Concomitant]

REACTIONS (5)
  - ANXIETY [None]
  - CHEMICAL BURN OF SKIN [None]
  - CHEST DISCOMFORT [None]
  - DYSKINESIA [None]
  - PHARMACEUTICAL PRODUCT COMPLAINT [None]
